FAERS Safety Report 7233998-7 (Version None)
Quarter: 2010Q4

REPORT INFORMATION
  Report Type: 
  Country: None (occurrence: None)
  Receive Date: 20101129
  Receipt Date: 20100730
  Transmission Date: 20110411
  Serious: Yes (Life-Threatening, Disabling, Other)
  Sender: FDA-Public Use
  Company Number: WAES 1008USA00020

PATIENT
  Age: 67 Year
  Sex: Female

DRUGS (3)
  1. EMEND [Suspect]
     Indication: CHEMOTHERAPY
     Dosage: 115 MG/IV
     Route: 042
     Dates: start: 20100712, end: 20100712
  2. HYDROCHLOROTHIAZIDE [Concomitant]
  3. ISONIAZID [Concomitant]

REACTIONS (2)
  - DYSPNOEA [None]
  - FLUSHING [None]
